FAERS Safety Report 13738847 (Version 2)
Quarter: 2017Q3

REPORT INFORMATION
  Report Type: Spontaneous
  Country: JP (occurrence: JP)
  Receive Date: 20170710
  Receipt Date: 20170801
  Transmission Date: 20171127
  Serious: Yes (Death)
  Sender: FDA-Public Use
  Company Number: JP-CELGENEUS-JPN-20170609699

PATIENT
  Age: 73 Year
  Sex: Female

DRUGS (1)
  1. REVLIMID [Suspect]
     Active Substance: LENALIDOMIDE
     Indication: ADULT T-CELL LYMPHOMA/LEUKAEMIA
     Dosage: 10 MILLIGRAM
     Route: 048
     Dates: start: 20170508, end: 20170518

REACTIONS (1)
  - Adult T-cell lymphoma/leukaemia [Fatal]

NARRATIVE: CASE EVENT DATE: 20170625
